FAERS Safety Report 17010593 (Version 1)
Quarter: 2019Q4

REPORT INFORMATION
  Report Type: Spontaneous
  Country: FR (occurrence: FR)
  Receive Date: 20191108
  Receipt Date: 20191108
  Transmission Date: 20200122
  Serious: Yes (Other)
  Sender: FDA-Public Use
  Company Number: FR-US-PROVELL PHARMACEUTICALS LLC-9026474

PATIENT
  Age: 71 Year
  Sex: Female

DRUGS (1)
  1. LEVOTHYROX 150 NF [Suspect]
     Active Substance: LEVOTHYROXINE SODIUM
     Indication: AUTOIMMUNE THYROIDITIS
     Dates: start: 201703, end: 20180522

REACTIONS (40)
  - Pruritus [Unknown]
  - General physical health deterioration [Unknown]
  - Contusion [Unknown]
  - White blood cell count increased [Unknown]
  - Carcinoembryonic antigen increased [Unknown]
  - Sleep disorder [Unknown]
  - Decreased activity [Unknown]
  - Asthenia [Unknown]
  - Weight increased [Not Recovered/Not Resolved]
  - Gamma-glutamyltransferase increased [Unknown]
  - Blood triglycerides increased [Unknown]
  - Low density lipoprotein increased [Unknown]
  - Dysentery [Not Recovered/Not Resolved]
  - Fear [Unknown]
  - Suicidal ideation [Not Recovered/Not Resolved]
  - Head discomfort [Unknown]
  - Dizziness [Unknown]
  - Immunoglobulins decreased [Unknown]
  - Night sweats [Unknown]
  - Vomiting [Not Recovered/Not Resolved]
  - Blood pressure increased [Unknown]
  - Nausea [Not Recovered/Not Resolved]
  - Tinnitus [Unknown]
  - Decreased interest [Unknown]
  - Haematocrit decreased [Recovered/Resolved]
  - Blood cholesterol increased [Unknown]
  - Fatigue [Unknown]
  - Dyspnoea [Unknown]
  - Joint swelling [Unknown]
  - Somnolence [Unknown]
  - Alpha 1 globulin increased [Unknown]
  - Irritability [Unknown]
  - Blood thyroid stimulating hormone increased [Unknown]
  - Mean cell haemoglobin decreased [Not Recovered/Not Resolved]
  - Neutrophil count increased [Unknown]
  - Fear of falling [Unknown]
  - Hypoalbuminaemia [Unknown]
  - Alopecia [Not Recovered/Not Resolved]
  - C-reactive protein increased [Unknown]
  - Nervousness [Unknown]

NARRATIVE: CASE EVENT DATE: 20170505
